FAERS Safety Report 15838255 (Version 3)
Quarter: 2019Q1

REPORT INFORMATION
  Report Type: Spontaneous
  Country: TR (occurrence: TR)
  Receive Date: 20190117
  Receipt Date: 20190214
  Transmission Date: 20190417
  Serious: Yes (Other)
  Sender: FDA-Public Use
  Company Number: PHHY2019TR008717

PATIENT
  Age: 28 Year
  Sex: Female

DRUGS (7)
  1. VERXANT [Suspect]
     Active Substance: SECUKINUMAB
     Dosage: 4TH DOSE
     Route: 058
     Dates: start: 20181124
  2. VERXANT [Suspect]
     Active Substance: SECUKINUMAB
     Dosage: UNK
     Route: 058
     Dates: start: 20190126
  3. VERXANT [Suspect]
     Active Substance: SECUKINUMAB
     Dosage: 3RD DOSE
     Route: 058
     Dates: start: 20181117
  4. VERXANT [Suspect]
     Active Substance: SECUKINUMAB
     Indication: PSORIASIS
     Dosage: UNK
     Route: 058
     Dates: start: 20181102
  5. VERXANT [Suspect]
     Active Substance: SECUKINUMAB
     Indication: ARTHRALGIA
     Dosage: 2ND DOSE
     Route: 058
     Dates: start: 20181110
  6. VERXANT [Suspect]
     Active Substance: SECUKINUMAB
     Dosage: PROTECTIVE DOSE
     Route: 058
     Dates: start: 20181229
  7. PANTOPRAZOLE [Concomitant]
     Active Substance: PANTOPRAZOLE
     Indication: PRODUCT USED FOR UNKNOWN INDICATION
     Dosage: UNK
     Route: 065

REACTIONS (10)
  - Psoriasis [Unknown]
  - Drug ineffective [Unknown]
  - Upper respiratory tract infection [Recovered/Resolved]
  - Drug resistance [Unknown]
  - Pyrexia [Unknown]
  - Cough [Unknown]
  - Swelling [Not Recovered/Not Resolved]
  - Weight decreased [Recovered/Resolved]
  - Pain [Not Recovered/Not Resolved]
  - Arthritis [Unknown]

NARRATIVE: CASE EVENT DATE: 20181126
